FAERS Safety Report 18853312 (Version 1)
Quarter: 2021Q1

REPORT INFORMATION
  Report Type: Other
  Country: CA (occurrence: CA)
  Receive Date: 20210205
  Receipt Date: 20210205
  Transmission Date: 20210420
  Serious: Yes (Hospitalization, Other)
  Sender: FDA-Public Use
  Company Number: CA-APOTEX-2021AP002173

PATIENT
  Age: 34 Year
  Sex: Female

DRUGS (2)
  1. METHOTREXATE. [Interacting]
     Active Substance: METHOTREXATE
     Indication: ECTOPIC PREGNANCY
     Dosage: UNK
     Route: 065
  2. POTASSIUM CHLORIDE. [Suspect]
     Active Substance: POTASSIUM CHLORIDE
     Indication: ECTOPIC PREGNANCY
     Dosage: UNK
     Route: 065

REACTIONS (14)
  - Myelosuppression [Unknown]
  - Off label use [Unknown]
  - Abdominal pain [Unknown]
  - Maternal exposure during pregnancy [Unknown]
  - Vaginal haemorrhage [Unknown]
  - Hysterectomy [Unknown]
  - Peritonitis [Unknown]
  - Sepsis [Unknown]
  - Vascular pseudoaneurysm [Unknown]
  - Pancytopenia [Unknown]
  - Hypotension [Unknown]
  - Drug interaction [Unknown]
  - Product use in unapproved indication [Unknown]
  - Pyrexia [Unknown]
